FAERS Safety Report 6507344-8 (Version None)
Quarter: 2009Q4

REPORT INFORMATION
  Report Type: 
  Country: None (occurrence: None)
  Receive Date: 20091221
  Receipt Date: 20091215
  Transmission Date: 20100525
  Serious: Yes (Other)
  Sender: FDA-Public Use
  Company Number: GB-NOVOPROD-292074

PATIENT
  Sex: Female

DRUGS (1)
  1. VAGIFEM [Suspect]
     Indication: CERVIX DISORDER
     Dosage: 25 UG, UNK
     Route: 067

REACTIONS (6)
  - HOT FLUSH [None]
  - HYPERHIDROSIS [None]
  - MALAISE [None]
  - MOOD SWINGS [None]
  - VULVOVAGINAL BURNING SENSATION [None]
  - VULVOVAGINAL PAIN [None]
